FAERS Safety Report 25523426 (Version 1)
Quarter: 2025Q3

REPORT INFORMATION
  Report Type: Spontaneous
  Country: EU (occurrence: EU)
  Receive Date: 20250707
  Receipt Date: 20250707
  Transmission Date: 20251020
  Serious: Yes (Hospitalization, Other)
  Sender: ABBVIE
  Company Number: None

PATIENT
  Age: 23 Year
  Sex: Female
  Weight: 55 kg

DRUGS (1)
  1. RINVOQ [Suspect]
     Active Substance: UPADACITINIB
     Indication: Crohn^s disease
     Dosage: INTAKE OF 30 MG/DAY
     Route: 048
     Dates: start: 20250203, end: 20250404

REACTIONS (1)
  - Herpes simplex hepatitis [Recovered/Resolved]

NARRATIVE: CASE EVENT DATE: 20250404
